FAERS Safety Report 23741616 (Version 1)
Quarter: 2024Q2

REPORT INFORMATION
  Report Type: Report from Study
  Country: US (occurrence: US)
  Receive Date: 20240415
  Receipt Date: 20240415
  Transmission Date: 20240716
  Serious: Yes (Other)
  Sender: FDA-Public Use
  Company Number: US-UCBSA-2024017610

PATIENT
  Age: 50 Year
  Sex: Female
  Weight: 84.172 kg

DRUGS (9)
  1. ROTIGOTINE [Suspect]
     Active Substance: ROTIGOTINE
     Indication: Parkinson^s disease
     Dosage: 4 MILLIGRAM, ONCE DAILY (QD) FOR 90 DAYS
     Route: 062
     Dates: start: 20231210
  2. CARBIDOPA LEVODOPA [Concomitant]
     Active Substance: CARBIDOPA\LEVODOPA
     Indication: Parkinson^s disease
     Dosage: TAKE 2 TABLETS BY MOUTH 4 TIMES DAILY AS DIRECTED FOR 90 DAYS
     Route: 048
     Dates: start: 20230909
  3. DICLOFENAC [Concomitant]
     Active Substance: DICLOFENAC
     Indication: Product used for unknown indication
     Dosage: APPLY 2 GRAMS TO THE AFFECTED AREAS BY TOPICAL ROUTE 4 TIMES PER DAY
     Route: 061
     Dates: start: 20221111
  4. HYDROXYZINE HYDROCHLORIDE [Concomitant]
     Active Substance: HYDROXYZINE HYDROCHLORIDE
     Indication: Product used for unknown indication
     Dosage: TAKE 1 TABLET BY MOUTH THREE TIMES DAILY AS NEEDED
     Route: 048
     Dates: start: 20230526
  5. RYTARY [Concomitant]
     Active Substance: CARBIDOPA\LEVODOPA
     Indication: Parkinson^s disease
     Dosage: TAKE 4 CAPSULES THREE TIME A DAY (CAPSULE, EXTENDED RELEASE)
     Route: 048
     Dates: start: 20231016
  6. RYTARY [Concomitant]
     Active Substance: CARBIDOPA\LEVODOPA
     Dosage: TAKE 1 CAPSULE THREE TIME A DAY BY ORAL ROUTE (CAPSULE, EXTENDED RELEASE)
     Route: 048
     Dates: start: 20231103
  7. RYTARY [Concomitant]
     Active Substance: CARBIDOPA\LEVODOPA
     Dosage: TAKE 1 CAPSULE TWICE A DAY BY ORAL ROUTE FOR 90 DAYS (CAPSULE, EXTENDED RELEASE)
     Route: 048
     Dates: start: 20240404
  8. SERTRALINE [Concomitant]
     Active Substance: SERTRALINE HYDROCHLORIDE
     Indication: Product used for unknown indication
     Dosage: 1 DOSAGE FORM, ONCE DAILY (QD)
     Dates: start: 20231027
  9. SINEMET [Concomitant]
     Active Substance: CARBIDOPA\LEVODOPA
     Indication: Parkinson^s disease
     Dosage: 1.5 TABLETS, 4X/DAY (QID)

REACTIONS (2)
  - Parkinson^s disease [Unknown]
  - Skin reaction [Unknown]

NARRATIVE: CASE EVENT DATE: 20231210
